FAERS Safety Report 8925044 (Version 1)
Quarter: 2012Q4

REPORT INFORMATION
  Report Type: 
  Country: PE (occurrence: PE)
  Receive Date: 20121126
  Receipt Date: 20121126
  Transmission Date: 20130627
  Serious: Yes (Other)
  Sender: FDA-Public Use
  Company Number: PE-ROCHE-1159545

PATIENT
  Age: 60 Year
  Sex: Female

DRUGS (1)
  1. LUCENTIS [Suspect]
     Indication: PRODUCT USED FOR UNKNOWN INDICATION
     Dosage: 10 mg/ml
     Route: 050

REACTIONS (2)
  - Corneal oedema [Recovered/Resolved]
  - Eye inflammation [Unknown]
